FAERS Safety Report 21048556 (Version 1)
Quarter: 2022Q3

REPORT INFORMATION
  Report Type: Spontaneous
  Country: CN (occurrence: CN)
  Receive Date: 20220706
  Receipt Date: 20220706
  Transmission Date: 20221026
  Serious: Yes (Other)
  Sender: FDA-Public Use
  Company Number: CN-PFIZER INC-PV202200015806

PATIENT
  Age: 8 Year
  Sex: Male
  Weight: 43 kg

DRUGS (2)
  1. METHYLPREDNISOLONE SODIUM SUCCINATE [Suspect]
     Active Substance: METHYLPREDNISOLONE SODIUM SUCCINATE
     Indication: Antiallergic therapy
     Dosage: 40 MG, 2X/DAY
     Route: 041
     Dates: start: 20220526, end: 20220528
  2. SODIUM CHLORIDE [Concomitant]
     Active Substance: SODIUM CHLORIDE
     Indication: Vehicle solution use
     Dosage: 100 ML, 2X/DAY
     Route: 041
     Dates: start: 20220526, end: 20220528

REACTIONS (5)
  - Chest discomfort [Recovered/Resolved]
  - Cough [Unknown]
  - Dental discomfort [Recovering/Resolving]
  - Toothache [Recovering/Resolving]
  - Drug hypersensitivity [Unknown]

NARRATIVE: CASE EVENT DATE: 20220527
